FAERS Safety Report 9520150 (Version 3)
Quarter: 2013Q4

REPORT INFORMATION
  Report Type: Spontaneous
  Country: US (occurrence: None)
  Receive Date: 20130912
  Receipt Date: 20131011
  Transmission Date: 20140711
  Serious: Yes (Death, Other)
  Sender: FDA-Public Use
  Company Number: ADR-2013-01589

PATIENT
  Age: 63 Year
  Sex: Male

DRUGS (2)
  1. BACLOFEN [Suspect]
     Indication: CANCER PAIN
     Dosage: 781.0MCG/DAY
     Dates: start: 20120718
  2. DILAUDID [Suspect]
     Dosage: 130.17 MCG/DAY

REACTIONS (2)
  - Plasma cell myeloma [None]
  - Malignant neoplasm progression [None]
